FAERS Safety Report 8963196 (Version 1)
Quarter: 2012Q4

REPORT INFORMATION
  Report Type: 
  Country: US (occurrence: US)
  Receive Date: 20121214
  Receipt Date: 20121214
  Transmission Date: 20130627
  Serious: Yes (Death, Hospitalization, Other)
  Sender: FDA-Public Use
  Company Number: US-ELI_LILLY_AND_COMPANY-US201212002707

PATIENT
  Sex: Male

DRUGS (2)
  1. HUMULIN NPH [Suspect]
     Indication: TYPE 1 DIABETES MELLITUS
     Dosage: UNK, unknown
  2. HUMULIN REGULAR [Suspect]
     Indication: TYPE 1 DIABETES MELLITUS
     Dosage: UNK, unknown

REACTIONS (5)
  - Arm amputation [Fatal]
  - Leg amputation [Unknown]
  - Pancreas transplant [Unknown]
  - Renal transplant [Unknown]
  - Unevaluable event [Unknown]
